FAERS Safety Report 11945094 (Version 3)
Quarter: 2016Q1

REPORT INFORMATION
  Report Type: Spontaneous
  Country: JP (occurrence: JP)
  Receive Date: 20160125
  Receipt Date: 20160310
  Transmission Date: 20160526
  Serious: Yes (Other)
  Sender: FDA-Public Use
  Company Number: JP-ASTELLAS-2016JP000870

PATIENT
  Age: 82 Year
  Sex: Male
  Weight: 52 kg

DRUGS (4)
  1. XTANDI [Suspect]
     Active Substance: ENZALUTAMIDE
     Indication: HORMONE-REFRACTORY PROSTATE CANCER
     Route: 048
     Dates: start: 20160105, end: 20160116
  2. OLMETEC [Concomitant]
     Active Substance: OLMESARTAN MEDOXOMIL
     Indication: HYPERTENSION
     Route: 048
     Dates: start: 20140105
  3. CELECOX [Concomitant]
     Active Substance: CELECOXIB
     Indication: LUMBAR VERTEBRAL FRACTURE
     Route: 048
     Dates: start: 20140105
  4. URSODEOXYCHOLIC ACID [Concomitant]
     Active Substance: URSODIOL
     Indication: PRODUCT USED FOR UNKNOWN INDICATION
     Route: 048
     Dates: start: 20140105

REACTIONS (2)
  - Erythema multiforme [Recovering/Resolving]
  - Intentional underdose [Unknown]

NARRATIVE: CASE EVENT DATE: 20160105
